FAERS Safety Report 9346511 (Version 4)
Quarter: 2014Q2

REPORT INFORMATION
  Report Type: Spontaneous
  Country: US (occurrence: US)
  Receive Date: 20130613
  Receipt Date: 20140513
  Transmission Date: 20141212
  Serious: Yes (Other)
  Sender: FDA-Public Use
  Company Number: US-LUNDBECK-DKLU1091503

PATIENT
  Age: 10 Year
  Sex: Female

DRUGS (3)
  1. ONFI [Suspect]
     Indication: LENNOX-GASTAUT SYNDROME
     Dates: start: 20130313
  2. ONFI [Suspect]
     Indication: EPILEPSY
  3. PHENOBARBITAL [Concomitant]
     Indication: PRODUCT USED FOR UNKNOWN INDICATION

REACTIONS (1)
  - Urinary retention [Recovered/Resolved]
